FAERS Safety Report 5999752-9 (Version None)
Quarter: 2008Q4

REPORT INFORMATION
  Report Type: 
  Country: None (occurrence: None)
  Receive Date: 20081215
  Receipt Date: 20081202
  Transmission Date: 20090506
  Serious: No
  Sender: FDA-Public Use
  Company Number: US-ROCHE-600592

PATIENT
  Age: 30 Year
  Sex: Female

DRUGS (2)
  1. ACCUTANE [Suspect]
     Indication: DRUG USE FOR UNKNOWN INDICATION
     Dosage: DIVIDED DOSES.
     Route: 065
     Dates: start: 20071225, end: 20080523
  2. ACCUTANE [Suspect]
     Dosage: DURATION REPORTED- 1.5 MONTHS. DIVIDED DOSES
     Route: 065
     Dates: start: 20080524, end: 20080707

REACTIONS (2)
  - NO ADVERSE EVENT [None]
  - PREGNANCY [None]
